FAERS Safety Report 17394543 (Version 1)
Quarter: 2020Q1

REPORT INFORMATION
  Report Type: Report from Study
  Country: None (occurrence: CA)
  Receive Date: 20200210
  Receipt Date: 20200210
  Transmission Date: 20200409
  Serious: Yes (Other)
  Sender: FDA-Public Use
  Company Number: CA-ABBVIE-19K-028-2975482-00

PATIENT
  Sex: Male

DRUGS (1)
  1. HUMIRA [Suspect]
     Active Substance: ADALIMUMAB
     Indication: CROHN^S DISEASE
     Route: 058
     Dates: start: 20180226

REACTIONS (4)
  - Perineal abscess [Unknown]
  - Injection site pain [Unknown]
  - Fistula [Unknown]
  - Injection site injury [Unknown]

NARRATIVE: CASE EVENT DATE: 2018
